FAERS Safety Report 12936809 (Version 1)
Quarter: 2016Q4

REPORT INFORMATION
  Report Type: Spontaneous
  Country: JP (occurrence: JP)
  Receive Date: 20161114
  Receipt Date: 20161114
  Transmission Date: 20170207
  Serious: Yes (Other)
  Sender: FDA-Public Use
  Company Number: JP-PFIZER INC-2016234792

PATIENT
  Age: 66 Year
  Sex: Male
  Weight: 68 kg

DRUGS (19)
  1. TRAMAL [Suspect]
     Active Substance: TRAMADOL
     Indication: HERPES ZOSTER
     Dosage: 25 MG, 4X/DAY
     Route: 048
     Dates: start: 20151228, end: 20160104
  2. GRACEPTOR [Concomitant]
     Active Substance: TACROLIMUS
     Indication: LIVER TRANSPLANT
     Dosage: 3 MG, 2X/DAY
     Route: 048
  3. LEVOTHYROXINE. [Concomitant]
     Active Substance: LEVOTHYROXINE
     Indication: HYPOTHYROIDISM
     Dosage: 25 UG, 3X/DAY
     Route: 048
  4. MEDROL [Suspect]
     Active Substance: METHYLPREDNISOLONE
     Indication: LIVER TRANSPLANT
     Dosage: 2 MG, 1X/DAY
     Route: 048
  5. BAKTAR [Concomitant]
     Active Substance: SULFAMETHOXAZOLE\TRIMETHOPRIM
     Indication: LIVER TRANSPLANT
     Dosage: 2 DF, UNK
     Route: 048
  6. LANTUS [Concomitant]
     Active Substance: INSULIN GLARGINE
     Indication: DIABETES MELLITUS
     Dosage: 14 DF, 1X/DAY
     Route: 058
  7. BARACLUDE [Concomitant]
     Active Substance: ENTECAVIR
     Indication: LIVER TRANSPLANT
     Dosage: 0.5 MG, 1X/DAY
     Route: 048
  8. DEXART [Suspect]
     Active Substance: DEXAMETHASONE SODIUM PHOSPHATE
     Indication: HERPES ZOSTER
     Dosage: 1.62 MG, 1X/DAY
     Route: 008
     Dates: start: 20151228, end: 20151228
  9. APIDRA [Concomitant]
     Active Substance: INSULIN GLULISINE
     Indication: DIABETES MELLITUS
     Dosage: 4 DF, 3X/DAY
     Route: 058
  10. JUZENTAIHOTO [Concomitant]
     Dosage: UNK
     Dates: start: 20151228
  11. CELLCEPT [Concomitant]
     Active Substance: MYCOPHENOLATE MOFETIL\MYCOPHENOLATE MOFETIL HYDROCHLORIDE
     Indication: LIVER TRANSPLANT
     Dosage: 500 MG, 2X/DAY
     Route: 048
  12. TRAMAL [Suspect]
     Active Substance: TRAMADOL
     Dosage: 50 MG, 4X/DAY
     Route: 048
     Dates: start: 20160105
  13. MEPIVACAINE [Concomitant]
     Active Substance: MEPIVACAINE\MEPIVACAINE HYDROCHLORIDE
     Indication: HERPES ZOSTER
     Dosage: 5 ML, 1X/DAY
     Route: 008
     Dates: start: 20151228, end: 20151228
  14. FAMVIR [Concomitant]
     Active Substance: FAMCICLOVIR
     Indication: HERPES ZOSTER
     Dosage: UNK
     Dates: start: 20151210
  15. FEBURIC [Concomitant]
     Active Substance: FEBUXOSTAT
     Indication: HYPERURICAEMIA
     Dosage: 10 MG, 1X/DAY
     Route: 048
  16. NU LOTAN [Concomitant]
     Active Substance: LOSARTAN
     Indication: HYPERTENSION
     Dosage: 50 MG, 1X/DAY
     Route: 048
  17. TRAMAL [Suspect]
     Active Substance: TRAMADOL
     Dosage: 25 MG, 4X/DAY
     Dates: start: 20160121, end: 20160126
  18. PARIET [Suspect]
     Active Substance: RABEPRAZOLE SODIUM
     Indication: PROPHYLAXIS AGAINST GASTROINTESTINAL ULCER
     Dosage: 10 MG, 1X/DAY
     Route: 048
  19. GENTACIN [Concomitant]
     Active Substance: GENTAMICIN SULFATE
     Indication: HERPES ZOSTER
     Dosage: UNK
     Route: 062
     Dates: start: 20151210, end: 201601

REACTIONS (2)
  - Urinary retention [Recovered/Resolved]
  - Immunosuppressant drug level increased [Recovering/Resolving]

NARRATIVE: CASE EVENT DATE: 20151228
